FAERS Safety Report 8456819-3 (Version None)
Quarter: 2012Q2

REPORT INFORMATION
  Report Type: 
  Country: None (occurrence: None)
  Receive Date: 20120621
  Receipt Date: 20120615
  Transmission Date: 20120825
  Serious: Yes (Other)
  Sender: FDA-Public Use
  Company Number: US-PFIZER INC-2012112474

PATIENT
  Sex: Female

DRUGS (4)
  1. NADOLOL [Suspect]
     Indication: HEART RATE INCREASED
     Dosage: 40 MG, 2X/DAY
  2. VERAPAMIL [Concomitant]
     Dosage: UNK
  3. SYNTHROID [Concomitant]
     Indication: HYPOTHYROIDISM
     Dosage: UNK, 1X/DAY
  4. INSULIN [Concomitant]
     Indication: DIABETES MELLITUS
     Dosage: UNK
     Dates: start: 19820101

REACTIONS (1)
  - HEART RATE INCREASED [None]
